FAERS Safety Report 8150761-3 (Version None)
Quarter: 2012Q1

REPORT INFORMATION
  Report Type: 
  Country: None (occurrence: None)
  Receive Date: 20120220
  Receipt Date: 20120210
  Transmission Date: 20120608
  Serious: Yes (Hospitalization)
  Sender: FDA-Public Use
  Company Number: US-BAYER-2011-043368

PATIENT
  Age: 49 Year
  Sex: Female
  Weight: 61 kg

DRUGS (22)
  1. YASMIN [Suspect]
  2. HYDROCHLOROTHIAZIDE [Concomitant]
     Indication: HYPERTENSION
     Dosage: UNK
     Route: 048
     Dates: start: 20000101
  3. IBUPROFEN [Concomitant]
     Dosage: UNK
     Route: 048
     Dates: start: 20080101
  4. MULTI-VITAMINS [Concomitant]
     Dosage: 1 DF, QD
     Dates: start: 20080701, end: 20090923
  5. LOTREL [Concomitant]
     Dosage: UNK UNK, QD
     Dates: start: 20070715, end: 20100612
  6. YASMIN [Suspect]
     Indication: PREMENSTRUAL SYNDROME
  7. AMLODIPINE BESYLATE AND BENAZEPRIL HCL [Concomitant]
     Dosage: UNK
     Route: 048
     Dates: start: 20000101
  8. WELLBUTRIN [Concomitant]
     Dosage: 150 MG, QD
     Dates: start: 20080701, end: 20090923
  9. CALCIUM [Concomitant]
     Dosage: UNK
     Route: 048
  10. YAZ [Suspect]
     Indication: CONTRACEPTION
     Dosage: UNK
     Dates: start: 20080201, end: 20090801
  11. YAZ [Suspect]
     Indication: PREMENSTRUAL SYNDROME
  12. VITAMIN B COMPLEX CAP [Concomitant]
     Dosage: 1 DF, QD
     Route: 048
     Dates: start: 20080701, end: 20090923
  13. BENAZEPRIL HYDROCHLORIDE [Concomitant]
     Indication: HYPERTENSION
     Dosage: UNK
     Route: 048
     Dates: start: 20000101
  14. NAPROXEN SODIUM W/PSEUDOEPHEDRINE HCL [Concomitant]
     Dosage: 500 MG, QD
     Route: 048
     Dates: start: 20080901
  15. ROBAXIN [Concomitant]
     Indication: MUSCLE SPASMS
     Dosage: 500 MG, TID
     Route: 048
     Dates: start: 20090828, end: 20100425
  16. YAZ [Suspect]
  17. YASMIN [Suspect]
     Indication: CONTRACEPTION
     Dosage: UNK
     Dates: start: 20080501, end: 20080601
  18. TOPAMAX [Concomitant]
     Indication: HEADACHE
     Dosage: 100 MG, BID
     Route: 048
     Dates: start: 20060912, end: 20100612
  19. ASPIRIN [Concomitant]
     Dosage: UNK
     Route: 048
     Dates: start: 20080101
  20. GUANFACINE HYDROCHLORIDE [Concomitant]
     Indication: HYPERTENSION
     Dosage: UNK
     Route: 048
     Dates: start: 20080101, end: 20090101
  21. PRISTIQ [Concomitant]
     Indication: DEPRESSION
     Dosage: 50 MG, UNK
     Dates: start: 20080910, end: 20090923
  22. SINGULAIR [Concomitant]
     Indication: MULTIPLE ALLERGIES
     Dosage: 10 MG, QD
     Route: 048
     Dates: start: 20081025, end: 20100612

REACTIONS (5)
  - ANXIETY [None]
  - EMOTIONAL DISTRESS [None]
  - ANHEDONIA [None]
  - DEEP VEIN THROMBOSIS [None]
  - PAIN [None]
